FAERS Safety Report 17275697 (Version 1)
Quarter: 2020Q1

REPORT INFORMATION
  Report Type: Report from Study
  Country: CA (occurrence: CA)
  Receive Date: 20200116
  Receipt Date: 20200116
  Transmission Date: 20200409
  Serious: Yes (Other)
  Sender: FDA-Public Use
  Company Number: CA-GLAXOSMITHKLINE-CA2019AMR232358

PATIENT
  Age: 69 Year
  Sex: Female

DRUGS (1)
  1. MEPOLIZUMAB [Suspect]
     Active Substance: MEPOLIZUMAB
     Indication: ASTHMA
     Dosage: 100 MG, Z, MONTHLY
     Route: 042
     Dates: start: 20160902

REACTIONS (11)
  - Bacterial infection [Unknown]
  - Rhinorrhoea [Unknown]
  - Malaise [Unknown]
  - Pruritus [Unknown]
  - Influenza [Unknown]
  - Eye pruritus [Unknown]
  - Pyrexia [Unknown]
  - Pneumonia [Recovering/Resolving]
  - Oropharyngeal pain [Unknown]
  - Nasopharyngitis [Unknown]
  - Fatigue [Unknown]

NARRATIVE: CASE EVENT DATE: 20191201
